FAERS Safety Report 10133309 (Version 1)
Quarter: 2014Q2

REPORT INFORMATION
  Report Type: Spontaneous
  Country: US (occurrence: US)
  Receive Date: 20140428
  Receipt Date: 20140428
  Transmission Date: 20141212
  Serious: No
  Sender: FDA-Public Use
  Company Number: US-PFIZER INC-2014115977

PATIENT
  Age: 67 Year
  Sex: Female
  Weight: 67.12 kg

DRUGS (5)
  1. PRISTIQ [Suspect]
     Indication: PARKINSON^S DISEASE
     Dosage: 50 MG, DAILY
     Dates: start: 201402
  2. AZOR [Concomitant]
     Indication: HYPERTENSION
     Dosage: UNK, DAILY (^5 MG^)
  3. ATORVASTATIN [Concomitant]
     Indication: BLOOD CHOLESTEROL INCREASED
     Dosage: 40 MG, DAILY
  4. NEXIUM [Concomitant]
     Indication: GASTROOESOPHAGEAL REFLUX DISEASE
     Dosage: 40 MG, DAILY
  5. LEVODOPA-CARBIDOPA [Concomitant]
     Indication: PARKINSON^S DISEASE
     Dosage: CARBIDOPA (25MG), LEVODOPA (100MG), 3X/DAY

REACTIONS (1)
  - Crying [Unknown]
